FAERS Safety Report 19690767 (Version 1)
Quarter: 2021Q3

REPORT INFORMATION
  Report Type: Report from Study
  Country: US (occurrence: US)
  Receive Date: 20210812
  Receipt Date: 20210812
  Transmission Date: 20211014
  Serious: Yes (Death)
  Sender: FDA-Public Use
  Company Number: US-EISAI MEDICAL RESEARCH-EC-2021-096063

PATIENT
  Age: 71 Year
  Sex: Female
  Weight: 107.9 kg

DRUGS (16)
  1. DEXAMETHASONE. [Concomitant]
     Active Substance: DEXAMETHASONE
  2. SELENIUM [Concomitant]
     Active Substance: SELENIUM
  3. VITAMIN C [Concomitant]
     Active Substance: ASCORBIC ACID
  4. VITAMIN D3 [Concomitant]
     Active Substance: CHOLECALCIFEROL
  5. GABAPENTIN. [Concomitant]
     Active Substance: GABAPENTIN
  6. HYDROCHLOROTHIAZIDE. [Concomitant]
     Active Substance: HYDROCHLOROTHIAZIDE
  7. METOPROLOL. [Concomitant]
     Active Substance: METOPROLOL
  8. LENVIMA [Suspect]
     Active Substance: LENVATINIB
     Indication: ENDOMETRIAL CANCER
     Route: 048
     Dates: start: 20210609, end: 20210810
  9. ONDANSETRON [Concomitant]
     Active Substance: ONDANSETRON
  10. ALLOPURINOL. [Concomitant]
     Active Substance: ALLOPURINOL
  11. ALPRAZOLAM. [Concomitant]
     Active Substance: ALPRAZOLAM
  12. HYDROCODONE ?ACETAMINOPHEN [Concomitant]
  13. XARELTO [Concomitant]
     Active Substance: RIVAROXABAN
  14. MULTIVITAMIN [Concomitant]
     Active Substance: VITAMINS
  15. POTASSIUM CHLORIDE. [Concomitant]
     Active Substance: POTASSIUM CHLORIDE
  16. PROMETHAZINE [Concomitant]
     Active Substance: PROMETHAZINE HYDROCHLORIDE

REACTIONS (5)
  - Wrist fracture [Unknown]
  - Headache [Unknown]
  - Death [Fatal]
  - Fall [Unknown]
  - Head injury [Unknown]

NARRATIVE: CASE EVENT DATE: 202107
